FAERS Safety Report 6883986-5 (Version None)
Quarter: 2010Q3

REPORT INFORMATION
  Report Type: 
  Country: None (occurrence: None)
  Receive Date: 20100729
  Receipt Date: 20100718
  Transmission Date: 20110219
  Serious: Yes (Death, Hospitalization)
  Sender: FDA-Public Use
  Company Number: JP-GENZYME-THYM-1001329

PATIENT
  Sex: Female
  Weight: 50 kg

DRUGS (24)
  1. THYMOGLOBULIN [Suspect]
     Indication: BONE MARROW CONDITIONING REGIMEN
     Dosage: 3.75 MG/KG, QD
     Route: 042
  2. THYMOGLOBULIN [Suspect]
     Dosage: 2.75 MG/KG, QD
     Route: 042
     Dates: start: 20090812, end: 20090814
  3. TACROLIMUS [Concomitant]
     Indication: PROPHYLAXIS AGAINST GRAFT VERSUS HOST DISEASE
     Dosage: UNK
     Dates: start: 20090813, end: 20091117
  4. AMPHOTERICIN B [Concomitant]
     Indication: ANTIFUNGAL PROPHYLAXIS
     Dosage: UNK
     Dates: start: 20090810, end: 20090819
  5. ACYCLOVIR [Concomitant]
     Indication: ANTIVIRAL PROPHYLAXIS
     Dosage: UNK
     Dates: start: 20090813, end: 20090818
  6. FAMCICLOVIR [Concomitant]
     Indication: ANTIVIRAL PROPHYLAXIS
     Dosage: UNK
     Dates: start: 20090819, end: 20091117
  7. CYCLOPHOSPHAMIDE [Concomitant]
     Indication: PREMEDICATION
     Dosage: 30 MG/KG, QD
     Dates: start: 20090812, end: 20090814
  8. FLUDARABINE PHOSPHATE [Concomitant]
     Indication: PREMEDICATION
     Dosage: 20 UNK, QD
     Dates: start: 20090801, end: 20090801
  9. AMLODIPINE BESYLATE [Concomitant]
     Indication: HYPERTENSION
     Dosage: UNK
     Dates: start: 20090206, end: 20090206
  10. OMEPRAZOLE [Concomitant]
     Indication: REFLUX OESOPHAGITIS
     Dosage: UNK
     Dates: start: 20090206, end: 20090206
  11. ZOLPIDEM TARTRATE [Concomitant]
     Indication: INSOMNIA
     Dosage: UNK
     Dates: start: 20090206, end: 20091019
  12. DEFERASIROX [Concomitant]
     Indication: HAEMOSIDEROSIS
     Dosage: UNK
     Dates: start: 20090731, end: 20091001
  13. SODIUM ALGINATE [Concomitant]
     Indication: REFLUX OESOPHAGITIS
     Dosage: UNK
     Dates: start: 20090724, end: 20091117
  14. CLONAZEPAM [Concomitant]
     Indication: TREMOR
     Dosage: UNK
     Dates: start: 20090807, end: 20090915
  15. TRIMETHOPRIM + SULFAMETHOXAZOLE [Concomitant]
     Indication: ANTIFUNGAL PROPHYLAXIS
     Dosage: UNK
     Dates: start: 20090909, end: 20091028
  16. ANTIBIOTICS-RESISTANT LACTIC ACID BACTERIAE [Concomitant]
     Indication: PROPHYLAXIS
     Dosage: UNK
     Dates: start: 20090813, end: 20091117
  17. IMIPEM [Concomitant]
     Indication: FEBRILE NEUTROPENIA
     Dosage: UNK
     Dates: start: 20090717, end: 20090907
  18. ARBEKACIN SULFATE [Concomitant]
     Indication: FEBRILE NEUTROPENIA
     Dosage: UNK
     Dates: start: 20090717, end: 20090903
  19. LENOGRASTIM [Concomitant]
     Indication: PRODUCT USED FOR UNKNOWN INDICATION
     Dosage: UNK
     Dates: start: 20090820, end: 20090827
  20. EPOETIN NOS [Concomitant]
     Indication: NEPHROGENIC ANAEMIA
     Dosage: UNK
     Dates: start: 20090827, end: 20090827
  21. NORMAL HUMAN IMMUNOGLOBULIN [Concomitant]
     Indication: FEBRILE NEUTROPENIA
     Dosage: UNK
     Dates: start: 20090723, end: 20091117
  22. PREDNISOLONE [Concomitant]
     Indication: PREMEDICATION
     Dosage: UNK
     Dates: start: 20090812, end: 20090819
  23. GRANISETRON HCL [Concomitant]
     Indication: PROPHYLAXIS
     Dosage: UNK
     Dates: start: 20090812, end: 20090814
  24. NEUPOGEN [Concomitant]
     Indication: PRODUCT USED FOR UNKNOWN INDICATION
     Dosage: UNK
     Dates: start: 20090828, end: 20090829

REACTIONS (6)
  - CARDIAC FAILURE CONGESTIVE [None]
  - CEREBROVASCULAR DISORDER [None]
  - FUNGAL INFECTION [None]
  - GRAFT VERSUS HOST DISEASE [None]
  - NO THERAPEUTIC RESPONSE [None]
  - STAPHYLOCOCCAL INFECTION [None]
